FAERS Safety Report 14675049 (Version 2)
Quarter: 2018Q3

REPORT INFORMATION
  Report Type: Report from Study
  Country: ES (occurrence: ES)
  Receive Date: 20180323
  Receipt Date: 20180725
  Transmission Date: 20181010
  Serious: Yes (Other)
  Sender: FDA-Public Use
  Company Number: ES-TEVA-2018-ES-871210

PATIENT
  Age: 80 Year
  Sex: Male

DRUGS (3)
  1. PANTOPRAZOL [Concomitant]
     Active Substance: PANTOPRAZOLE SODIUM
     Route: 042
     Dates: start: 20170522
  2. LEVOFLOXACINO 500 [Suspect]
     Active Substance: LEVOFLOXACIN
     Dosage: 500 MILLIGRAM DAILY;
     Route: 042
     Dates: start: 20170522, end: 20170529
  3. PARACETAMOL [Concomitant]
     Active Substance: ACETAMINOPHEN
     Dosage: 1GR/8H
     Route: 042
     Dates: start: 20170522

REACTIONS (2)
  - Hepatitis cholestatic [Recovered/Resolved]
  - Rash maculo-papular [Recovered/Resolved]

NARRATIVE: CASE EVENT DATE: 20170522
